FAERS Safety Report 10218734 (Version 1)
Quarter: 2014Q2

REPORT INFORMATION
  Report Type: Spontaneous
  Country: US (occurrence: US)
  Receive Date: 20140605
  Receipt Date: 20140605
  Transmission Date: 20141212
  Serious: Yes (Death)
  Sender: FDA-Public Use
  Company Number: PHEH2014US011294

PATIENT
  Sex: Female

DRUGS (2)
  1. EXELON PATCH [Suspect]
     Dosage: 0.5 OR 0.1 (UNITS NOT PROVIDED)  UNK
     Route: 062
  2. DONEPEZIL [Suspect]
     Dosage: UNK UKN, UNK

REACTIONS (3)
  - Death [Fatal]
  - General physical health deterioration [Unknown]
  - Wrong technique in drug usage process [Unknown]
